FAERS Safety Report 14483904 (Version 3)
Quarter: 2018Q1

REPORT INFORMATION
  Report Type: Spontaneous
  Country: US (occurrence: US)
  Receive Date: 20180205
  Receipt Date: 20180326
  Transmission Date: 20180509
  Serious: No
  Sender: FDA-Public Use
  Company Number: US-B.I. PHARMACEUTICALS,INC./RIDGEFIELD-2018-BI-005328

PATIENT
  Sex: Female

DRUGS (1)
  1. SPIRIVA [Suspect]
     Active Substance: TIOTROPIUM BROMIDE MONOHYDRATE
     Indication: EMPHYSEMA
     Dosage: FORM STRENGTH: 18 MCG;? ADMINISTRATION CORRECT? NR ?ACTION(S) TAKEN WITH PRODUCT: NOT REPORTED
     Route: 065
     Dates: start: 201708

REACTIONS (2)
  - Product quality issue [Unknown]
  - Wheezing [Unknown]

NARRATIVE: CASE EVENT DATE: 20180129
